FAERS Safety Report 11025371 (Version 1)
Quarter: 2015Q2

REPORT INFORMATION
  Report Type: Spontaneous
  Country: US (occurrence: None)
  Receive Date: 20150410
  Receipt Date: 20150410
  Transmission Date: 20150821
  Serious: Yes (Other)
  Sender: FDA-Public Use
  Company Number: ADR-2007-4449

PATIENT
  Sex: Female

DRUGS (1)
  1. BACLOFEN INTRATHECAL [Suspect]
     Active Substance: BACLOFEN
     Indication: MUSCLE SPASTICITY

REACTIONS (11)
  - Overdose [None]
  - Withdrawal syndrome [None]
  - Procedural complication [None]
  - Nerve injury [None]
  - Underdose [None]
  - Device issue [None]
  - Spinal disorder [None]
  - Feeling hot [None]
  - Seizure [None]
  - Feeling abnormal [None]
  - Pain [None]
